FAERS Safety Report 15609174 (Version 9)
Quarter: 2019Q4

REPORT INFORMATION
  Report Type: Spontaneous
  Country: US (occurrence: US)
  Receive Date: 20181112
  Receipt Date: 20191119
  Transmission Date: 20200122
  Serious: Yes (Death, Hospitalization)
  Sender: FDA-Public Use
  Company Number: US-ACTELION-A-US2018-181159

PATIENT
  Age: 50 Year
  Sex: Female

DRUGS (15)
  1. CARVEDILOL. [Concomitant]
     Active Substance: CARVEDILOL
     Dosage: 25 MG, QD
  2. OPSUMIT [Suspect]
     Active Substance: MACITENTAN
     Indication: PULMONARY ARTERIAL HYPERTENSION
     Dosage: 10 MG, QD
     Route: 048
     Dates: start: 20180801, end: 20190311
  3. GABAPENTIN. [Concomitant]
     Active Substance: GABAPENTIN
     Dosage: 100 MG, BID
  4. CLONAZEPAM. [Concomitant]
     Active Substance: CLONAZEPAM
     Dosage: 1 MG, BID
  5. LORATADINE. [Concomitant]
     Active Substance: LORATADINE
     Dosage: 10 MG, QD
  6. ZIPRASIDONE. [Concomitant]
     Active Substance: ZIPRASIDONE
     Dosage: 40 MG, QD
  7. COUMADIN [Concomitant]
     Active Substance: WARFARIN SODIUM
  8. TRAVATAN Z [Concomitant]
     Active Substance: TRAVOPROST
  9. METOPROLOL. [Concomitant]
     Active Substance: METOPROLOL
     Dosage: 25 MG, QD
  10. FUROSEMIDE. [Concomitant]
     Active Substance: FUROSEMIDE
     Dosage: 80 MG, UNK
  11. PANTOPRAZOLE [Concomitant]
     Active Substance: PANTOPRAZOLE
     Dosage: 40 MG, QD
  12. SPIRONOLACTONE. [Concomitant]
     Active Substance: SPIRONOLACTONE
     Dosage: 25 MG, QD
  13. SYNTHROID [Concomitant]
     Active Substance: LEVOTHYROXINE SODIUM
     Dosage: 88 MG, QD
  14. FUROSEMIDE. [Concomitant]
     Active Substance: FUROSEMIDE
     Dosage: UNK
     Dates: start: 20181026
  15. SIMVASTATIN. [Concomitant]
     Active Substance: SIMVASTATIN
     Dosage: 20 MG, QD

REACTIONS (21)
  - Fall [Unknown]
  - Blood potassium abnormal [Unknown]
  - International normalised ratio abnormal [Unknown]
  - Mental status changes [Unknown]
  - Hypotension [Recovered/Resolved]
  - Cerebral arteriosclerosis [Fatal]
  - Mineral supplementation [Unknown]
  - Constipation [Unknown]
  - Oedema [Recovered/Resolved]
  - Asthenia [Recovering/Resolving]
  - Blood creatinine abnormal [Unknown]
  - Packed red blood cell transfusion [Recovering/Resolving]
  - Encephalopathy [Unknown]
  - Dehydration [Recovered/Resolved]
  - Loss of personal independence in daily activities [Unknown]
  - Abdominal distension [Recovered/Resolved]
  - Anaemia [Recovering/Resolving]
  - Adverse event [Unknown]
  - Blood urea abnormal [Unknown]
  - General physical health deterioration [Unknown]
  - Aspartate aminotransferase increased [Unknown]

NARRATIVE: CASE EVENT DATE: 20181201
